FAERS Safety Report 15384880 (Version 1)
Quarter: 2018Q3

REPORT INFORMATION
  Report Type: Spontaneous
  Country: US (occurrence: US)
  Receive Date: 20180907
  Receipt Date: 20180907
  Transmission Date: 20181010
  Serious: Yes (Hospitalization)
  Sender: FDA-Public Use
  Company Number: None

PATIENT
  Age: 68 Year
  Sex: Female

DRUGS (10)
  1. RANITIDINE 150 MG [Concomitant]
     Active Substance: RANITIDINE
  2. HYDROCODONE/ACETAMINOPHEN [Concomitant]
     Active Substance: ACETAMINOPHEN\HYDROCODONE
  3. ONDANSETRON ODT 8 MG [Concomitant]
  4. MAGNESIUM CITRATE 100MG [Concomitant]
  5. LEVOTHYROXINE 50 MCG [Concomitant]
     Active Substance: LEVOTHYROXINE
  6. AFINITOR [Suspect]
     Active Substance: EVEROLIMUS
     Indication: RENAL CELL CARCINOMA
     Route: 048
     Dates: start: 20180828, end: 20180902
  7. CLONIDINE 0.2 MG [Concomitant]
  8. IRON 325 MG [Concomitant]
  9. LENVIMA 14MG [Concomitant]
     Dates: start: 20180828
  10. FUROSEMIDE 20MG [Concomitant]
     Active Substance: FUROSEMIDE

REACTIONS (3)
  - Decreased appetite [None]
  - Dehydration [None]
  - Gastric infection [None]

NARRATIVE: CASE EVENT DATE: 20180902
